FAERS Safety Report 6327964-3 (Version None)
Quarter: 2009Q3

REPORT INFORMATION
  Report Type: 
  Country: None (occurrence: None)
  Receive Date: 20090824
  Receipt Date: 20090811
  Transmission Date: 20100115
  Serious: Yes (Death, Hospitalization, Other)
  Sender: FDA-Public Use
  Company Number: 2009AL004016

PATIENT
  Age: 69 Year
  Sex: Female

DRUGS (11)
  1. DICLOFENAC SODIUM [Suspect]
     Indication: ARTHRALGIA
     Dosage: 2 DF;
     Dates: start: 20090511
  2. GLYCERYL TRINITRATE [Concomitant]
  3. SALBUTAMOL [Concomitant]
  4. RAMIPRIL [Concomitant]
  5. PARACETAMOL [Concomitant]
  6. AMLODIPINE [Concomitant]
  7. ATORVASTATIN [Concomitant]
  8. LANSOPRAZOLE [Concomitant]
  9. SERETIDE [Concomitant]
  10. ASPIRIN [Concomitant]
  11. BUMETANIDE [Concomitant]

REACTIONS (7)
  - ANAPHYLACTIC REACTION [None]
  - CARDIAC ARREST [None]
  - COLITIS ISCHAEMIC [None]
  - DIARRHOEA [None]
  - LOSS OF CONSCIOUSNESS [None]
  - SELF-MEDICATION [None]
  - WRONG DRUG ADMINISTERED [None]
